FAERS Safety Report 8561743 (Version 5)
Quarter: 2012Q4

REPORT INFORMATION
  Report Type: 
  Country: US (occurrence: US)
  Receive Date: 20120515
  Receipt Date: 20121102
  Transmission Date: 20130627
  Serious: Yes (Death, Hospitalization, Other)
  Sender: FDA-Public Use
  Company Number: US-CELGENEUS-163-21880-12051356

PATIENT
  Age: 76 Year
  Sex: Female
  Weight: 60 kg

DRUGS (11)
  1. REVLIMID [Suspect]
     Indication: MULTIPLE MYELOMA
     Dosage: 10 Milligram
     Route: 048
     Dates: start: 201010
  2. REVLIMID [Suspect]
     Dosage: 25 Milligram
     Route: 048
     Dates: start: 201108, end: 201202
  3. DECADRON [Concomitant]
     Indication: DRUG USE FOR UNKNOWN INDICATION
     Route: 065
  4. SODIUM CHLORIDE [Concomitant]
     Indication: DRUG USE FOR UNKNOWN INDICATION
     Dosage: 2000
     Route: 065
     Dates: start: 20120316, end: 20120321
  5. SODIUM CHLORIDE [Concomitant]
     Dosage: 1000
     Route: 065
     Dates: start: 20120404, end: 20120404
  6. VELCADE [Concomitant]
     Indication: DRUG USE FOR UNKNOWN INDICATION
     Route: 065
  7. ACETAMINOPHEN [Concomitant]
     Indication: DRUG USE FOR UNKNOWN INDICATION
     Route: 065
  8. ATIVAN [Concomitant]
     Indication: DRUG USE FOR UNKNOWN INDICATION
     Dosage: .5
     Route: 065
     Dates: start: 20120316
  9. HEPARIN LOCK FLUSH [Concomitant]
     Indication: DRUG USE FOR UNKNOWN INDICATION
     Dosage: 3
     Route: 065
     Dates: start: 20120402
  10. NORMAL SALINE FLUSH [Concomitant]
     Indication: DRUG USE FOR UNKNOWN INDICATION
     Dosage: 5
     Route: 065
     Dates: start: 20120402
  11. PRILOSEC [Concomitant]
     Indication: DRUG USE FOR UNKNOWN INDICATION
     Dosage: 20
     Route: 065
     Dates: start: 20120316

REACTIONS (3)
  - Plasma cell myeloma [Fatal]
  - Platelet count decreased [Not Recovered/Not Resolved]
  - Pancytopenia [Unknown]
